FAERS Safety Report 9355321 (Version 3)
Quarter: 2013Q4

REPORT INFORMATION
  Report Type: Spontaneous
  Country: US (occurrence: US)
  Receive Date: 20130619
  Receipt Date: 20131028
  Transmission Date: 20140711
  Serious: No
  Sender: FDA-Public Use
  Company Number: US-PFIZER INC-2013181138

PATIENT
  Age: 75 Year
  Sex: Female
  Weight: 67.12 kg

DRUGS (3)
  1. ADVIL [Suspect]
     Indication: OSTEOARTHRITIS
     Dosage: 400 MG (TWO 200 MG TABLETS TOGETHER), THREE TIMES A DAY
     Route: 048
     Dates: start: 20130611
  2. ADVIL [Suspect]
     Indication: PAIN
     Dosage: UNK
  3. TYLENOL [Concomitant]
     Indication: PAIN
     Dosage: UNK, AS NEEDED

REACTIONS (2)
  - Drug ineffective [Unknown]
  - Malaise [Unknown]
